FAERS Safety Report 6694213-6 (Version None)
Quarter: 2010Q2

REPORT INFORMATION
  Report Type: 
  Country: None (occurrence: None)
  Receive Date: 20100423
  Receipt Date: 20100415
  Transmission Date: 20101027
  Serious: Yes (Hospitalization)
  Sender: FDA-Public Use
  Company Number: JP-ROCHE-695179

PATIENT
  Sex: Female
  Weight: 51 kg

DRUGS (10)
  1. BEVACIZUMAB [Suspect]
     Indication: BREAST CANCER
     Route: 042
     Dates: start: 20080612
  2. PACLITAXEL [Suspect]
     Indication: BREAST CANCER
     Dosage: FORM:INJECTION.
     Route: 042
     Dates: start: 20080612
  3. DEXART [Suspect]
     Indication: BREAST CANCER
     Dosage: FORM:INJECTION.
     Route: 042
     Dates: start: 20080612
  4. KYTRIL [Concomitant]
     Route: 042
     Dates: start: 20080612
  5. ZANTAC [Concomitant]
     Route: 042
     Dates: start: 20080612
  6. RESTAMIN [Concomitant]
     Route: 048
     Dates: start: 20080612
  7. AMLODIN [Concomitant]
     Route: 048
     Dates: start: 20091101
  8. BIOFERMIN [Concomitant]
     Route: 048
     Dates: start: 20090929
  9. MUCOSTA [Concomitant]
     Route: 048
     Dates: start: 20090129
  10. MYSLEE [Concomitant]
     Route: 048
     Dates: start: 20080626

REACTIONS (1)
  - HERPES ZOSTER [None]
